FAERS Safety Report 23252538 (Version 1)
Quarter: 2023Q4

REPORT INFORMATION
  Report Type: Spontaneous
  Country: US (occurrence: None)
  Receive Date: 20231201
  Receipt Date: 20231201
  Transmission Date: 20240109
  Serious: Yes (Hospitalization)
  Sender: FDA-Public Use
  Company Number: None

PATIENT
  Age: 27 Year
  Sex: Male

DRUGS (4)
  1. INVEGA SUSTENNA [Suspect]
     Active Substance: PALIPERIDONE PALMITATE
     Indication: Schizophrenia
     Dosage: OTHER FREQUENCY : EVERY MONTH;?
     Route: 030
     Dates: start: 20231031
  2. CYMBALTA [Suspect]
     Active Substance: DULOXETINE HYDROCHLORIDE
  3. PRAZOSIN [Concomitant]
     Active Substance: PRAZOSIN
  4. METAXALONE [Concomitant]
     Active Substance: METAXALONE

REACTIONS (6)
  - Agitation [None]
  - Confusional state [None]
  - Pupil fixed [None]
  - Mydriasis [None]
  - Amnesia [None]
  - Product substitution issue [None]

NARRATIVE: CASE EVENT DATE: 20231126
